FAERS Safety Report 6733355-3 (Version None)
Quarter: 2010Q2

REPORT INFORMATION
  Report Type: 
  Country: None (occurrence: None)
  Receive Date: 20100520
  Receipt Date: 20100512
  Transmission Date: 20101027
  Serious: Yes (Other)
  Sender: FDA-Public Use
  Company Number: FR-PFIZER INC-2010036152

PATIENT
  Age: 65 Year
  Sex: Male
  Weight: 60.5 kg

DRUGS (7)
  1. LYRICA [Suspect]
     Indication: NEURALGIA
     Dosage: 75 MG, 2X/DAY
     Route: 048
     Dates: start: 20100301, end: 20100316
  2. LYRICA [Suspect]
     Indication: TOXIC NEUROPATHY
  3. VELCADE [Concomitant]
     Indication: MULTIPLE MYELOMA
     Dosage: UNK
     Route: 051
     Dates: start: 20100201, end: 20100301
  4. RULID [Concomitant]
     Dosage: UNK
     Dates: start: 20100201
  5. WELLVONE [Concomitant]
     Dosage: UNK
  6. ZELITREX [Concomitant]
     Dosage: UNK
     Dates: start: 20100201
  7. ZOMETA [Concomitant]
     Indication: MULTIPLE MYELOMA
     Dosage: 1 DF, MONTHLY
     Route: 051
     Dates: start: 20100201

REACTIONS (4)
  - BACK PAIN [None]
  - EPISTAXIS [None]
  - INSOMNIA [None]
  - MYALGIA [None]
